FAERS Safety Report 9450544 (Version 2)
Quarter: 2013Q3

REPORT INFORMATION
  Report Type: Spontaneous
  Country: US (occurrence: US)
  Receive Date: 20130809
  Receipt Date: 20130905
  Transmission Date: 20140515
  Serious: Yes (Hospitalization)
  Sender: FDA-Public Use
  Company Number: US-GLAXOSMITHKLINE-A1001835A

PATIENT
  Age: 49 Year
  Sex: Male
  Weight: 73.2 kg

DRUGS (1)
  1. AVANDIA [Suspect]
     Indication: DIABETES MELLITUS
     Dosage: 8MG PER DAY
     Route: 048
     Dates: start: 20060609, end: 20070426

REACTIONS (5)
  - Angina unstable [Not Recovered/Not Resolved]
  - Coronary artery disease [Unknown]
  - Cardiac disorder [Unknown]
  - Stent placement [Unknown]
  - Fatigue [Unknown]
